FAERS Safety Report 8883800 (Version 1)
Quarter: 2012Q4

REPORT INFORMATION
  Report Type: 
  Country: US (occurrence: US)
  Receive Date: 20121102
  Receipt Date: 20121102
  Transmission Date: 20130627
  Serious: Yes (Other)
  Sender: FDA-Public Use
  Company Number: US-WATSON-2012-18510

PATIENT
  Sex: Male
  Weight: 86 kg

DRUGS (1)
  1. RAPAFLO (WATSON LABORATORIES) [Suspect]
     Indication: BENIGN PROSTATIC HYPERPLASIA
     Dosage: 8mg, 1 QD
     Route: 048
     Dates: start: 2009, end: 2009

REACTIONS (2)
  - Tendon rupture [Not Recovered/Not Resolved]
  - Tendon injury [Recovered/Resolved]
